FAERS Safety Report 24771567 (Version 1)
Quarter: 2024Q4

REPORT INFORMATION
  Report Type: Spontaneous
  Country: PT (occurrence: PT)
  Receive Date: 20241224
  Receipt Date: 20241224
  Transmission Date: 20250115
  Serious: Yes (Hospitalization, Other)
  Sender: JOHNSON AND JOHNSON
  Company Number: PT-JNJFOC-20241260668

PATIENT
  Age: 47 Year
  Sex: Female

DRUGS (1)
  1. REMICADE [Suspect]
     Active Substance: INFLIXIMAB
     Indication: Spondyloarthropathy
     Route: 041

REACTIONS (5)
  - Middle cerebral artery stroke [Unknown]
  - Cerebral haematoma [Recovered/Resolved]
  - Pneumonia [Recovered/Resolved]
  - Fungal endocarditis [Unknown]
  - Aspergilloma [Unknown]
